FAERS Safety Report 13820421 (Version 1)
Quarter: 2017Q3

REPORT INFORMATION
  Report Type: Spontaneous
  Country: US (occurrence: US)
  Receive Date: 20170801
  Receipt Date: 20170801
  Transmission Date: 20171127
  Serious: Yes (Hospitalization)
  Sender: FDA-Public Use
  Company Number: None

PATIENT
  Age: 97 Year
  Sex: Female
  Weight: 53.98 kg

DRUGS (1)
  1. MELOXICAM. [Suspect]
     Active Substance: MELOXICAM
     Indication: PAIN
     Route: 048
     Dates: start: 20170120, end: 20170710

REACTIONS (4)
  - Upper gastrointestinal haemorrhage [None]
  - Sepsis [None]
  - Pneumonia aspiration [None]
  - Haematemesis [None]

NARRATIVE: CASE EVENT DATE: 20170710
